FAERS Safety Report 8775542 (Version 2)
Quarter: 2013Q4

REPORT INFORMATION
  Report Type: Spontaneous
  Country: US (occurrence: US)
  Receive Date: 20120909
  Receipt Date: 20131101
  Transmission Date: 20140711
  Serious: No
  Sender: FDA-Public Use
  Company Number: US-009507513-1209USA001856

PATIENT
  Age: 42 Year
  Sex: Male

DRUGS (1)
  1. DULERA [Suspect]
     Indication: ASTHMA
     Dosage: 200/5 MG
     Route: 055
     Dates: start: 20120809, end: 20120816

REACTIONS (2)
  - Dyspnoea [Recovering/Resolving]
  - Headache [Recovering/Resolving]
